FAERS Safety Report 7840861 (Version 5)
Quarter: 2015Q1

REPORT INFORMATION
  Report Type: Spontaneous
  Country: JP (occurrence: JP)
  Receive Date: 20110304
  Receipt Date: 20150324
  Transmission Date: 20150721
  Serious: Yes (Death, Hospitalization)
  Sender: FDA-Public Use
  Company Number: JP-PFIZER INC-2011042379

PATIENT
  Age: 55 Year
  Sex: Female

DRUGS (1)
  1. SUTENT [Suspect]
     Active Substance: SUNITINIB MALATE
     Indication: METASTATIC RENAL CELL CARCINOMA
     Dosage: 37.5 MG/DAY ON A CYCLE OF 28-DAY ADMINISTRATION FOLLOWED BY 14-DAY CESSATION
     Route: 048
     Dates: start: 20101126, end: 201102

REACTIONS (8)
  - Metastatic renal cell carcinoma [Fatal]
  - Palmar-plantar erythrodysaesthesia syndrome [Unknown]
  - Hypertension [Unknown]
  - Malaise [Unknown]
  - Pleural effusion [Unknown]
  - Disease progression [Fatal]
  - Arrhythmia [Unknown]
  - Face oedema [Unknown]

NARRATIVE: CASE EVENT DATE: 2010
